APPROVED DRUG PRODUCT: DESOXIMETASONE
Active Ingredient: DESOXIMETASONE
Strength: 0.05%
Dosage Form/Route: OINTMENT;TOPICAL
Application: A209973 | Product #001 | TE Code: AB
Applicant: THE J MOLNER CO OU
Approved: Oct 23, 2018 | RLD: No | RS: No | Type: RX